FAERS Safety Report 17082236 (Version 4)
Quarter: 2020Q1

REPORT INFORMATION
  Report Type: Spontaneous
  Country: CA (occurrence: CA)
  Receive Date: 20191127
  Receipt Date: 20200127
  Transmission Date: 20200409
  Serious: Yes (Death, Hospitalization, Other)
  Sender: FDA-Public Use
  Company Number: CA-PFIZER INC-2019416587

PATIENT
  Age: 68 Year
  Sex: Male
  Weight: 100.4 kg

DRUGS (20)
  1. BOSULIF [Suspect]
     Active Substance: BOSUTINIB MONOHYDRATE
     Indication: CHRONIC MYELOID LEUKAEMIA
     Dosage: 300 MG, 1X/DAY X 4 WEEKS
     Route: 048
     Dates: start: 20191007
  2. AMIODARONE [Concomitant]
     Active Substance: AMIODARONE
     Dosage: 400 MG, 2X/DAY
  3. PREGABALIN. [Concomitant]
     Active Substance: PREGABALIN
     Dosage: 75, 2X/DAY
  4. SITAGLIPTIN [Concomitant]
     Active Substance: SITAGLIPTIN
     Dosage: 100 MG, DAILY
  5. AMLODIPINE [Concomitant]
     Active Substance: AMLODIPINE BESYLATE
     Dosage: 5 MG, UNK
  6. SPIRIVA [Concomitant]
     Active Substance: TIOTROPIUM BROMIDE MONOHYDRATE
     Dosage: 18 UG, DAILY
  7. PLAVIX [Concomitant]
     Active Substance: CLOPIDOGREL BISULFATE
     Dosage: 75 MG, UNK
  8. EZETIMIBE. [Concomitant]
     Active Substance: EZETIMIBE
     Dosage: 10 MG, UNK
  9. METOPROLOL. [Concomitant]
     Active Substance: METOPROLOL
     Dosage: 25 MG, 2X/DAY
  10. HEPARIN [Concomitant]
     Active Substance: HEPARIN SODIUM
     Dosage: UNK
     Dates: end: 20191121
  11. VITAMIN D [VITAMIN D NOS] [Concomitant]
     Active Substance: VITAMIN D NOS
     Dosage: 1000 IU, DAILY
  12. EMPAGLIFLOZIN [Concomitant]
     Active Substance: EMPAGLIFLOZIN
     Dosage: 25 UNK, UNK
  13. NICOTINE. [Concomitant]
     Active Substance: NICOTINE
     Dosage: UNK
  14. ASA [Concomitant]
     Active Substance: ASPIRIN
     Dosage: 81 UNK, UNK
  15. INDAPAMIDE. [Concomitant]
     Active Substance: INDAPAMIDE
     Dosage: 2.5 UNK, UNK
  16. RAMIPRIL. [Concomitant]
     Active Substance: RAMIPRIL
     Dosage: 10 MG, DAILY
  17. CLAVULIN [AMOXICILLIN SODIUM;CLAVULANATE POTASSIUM] [Concomitant]
     Active Substance: AMOXICILLIN\CLAVULANATE POTASSIUM
     Dosage: UNK
     Dates: end: 20191121
  18. LASIX [Concomitant]
     Active Substance: FUROSEMIDE
     Dosage: 40 MG, UNK
  19. LANTUS [Concomitant]
     Active Substance: INSULIN GLARGINE
     Dosage: 24 IU, AT BEDTIME
  20. FERAMAX [Concomitant]
     Active Substance: IRON\POLYSACCHARIDES
     Dosage: UNK

REACTIONS (14)
  - Ejection fraction decreased [Unknown]
  - Cerebral haemorrhage [Unknown]
  - Bronchitis [Unknown]
  - Ventricular tachycardia [Fatal]
  - Pneumonia [Unknown]
  - Generalised tonic-clonic seizure [Unknown]
  - Brain contusion [Unknown]
  - Malaise [Unknown]
  - Productive cough [Recovering/Resolving]
  - Liver function test increased [Unknown]
  - Cardiac failure congestive [Unknown]
  - Influenza like illness [Unknown]
  - Dyspnoea exertional [Unknown]
  - Myocardial infarction [Unknown]

NARRATIVE: CASE EVENT DATE: 20191124
